FAERS Safety Report 11417645 (Version 1)
Quarter: 2015Q3

REPORT INFORMATION
  Report Type: Spontaneous
  Country: US (occurrence: US)
  Receive Date: 20150825
  Receipt Date: 20150825
  Transmission Date: 20151125
  Serious: Yes (Hospitalization, Other)
  Sender: FDA-Public Use
  Company Number: US-GLAXOSMITHKLINE-US2015121427

PATIENT
  Age: 7 Month
  Sex: Male

DRUGS (2)
  1. FLOVENT HFA [Suspect]
     Active Substance: FLUTICASONE PROPIONATE
     Indication: PULMONARY HYPERTENSION
     Dosage: 2 PUFF(S), QD
     Route: 055
     Dates: start: 2012
  2. FLOVENT HFA [Suspect]
     Active Substance: FLUTICASONE PROPIONATE
     Indication: CHOANAL ATRESIA
     Dosage: 2 PUFF(S), BID
     Route: 055

REACTIONS (5)
  - Bronchiolitis [Recovered/Resolved]
  - Pallor [Recovered/Resolved]
  - Underdose [Recovered/Resolved]
  - Pneumonia [Recovered/Resolved]
  - Throat tightness [Recovered/Resolved]

NARRATIVE: CASE EVENT DATE: 201305
